FAERS Safety Report 19564593 (Version 1)
Quarter: 2021Q3

REPORT INFORMATION
  Report Type: Spontaneous
  Country: US (occurrence: US)
  Receive Date: 20210714
  Receipt Date: 20210714
  Transmission Date: 20211014
  Serious: Yes (Death, Hospitalization)
  Sender: FDA-Public Use
  Company Number: US-CELGENEUS-USA-20210702272

PATIENT
  Age: 76 Year
  Sex: Male

DRUGS (4)
  1. KYPROLIS [Concomitant]
     Active Substance: CARFILZOMIB
     Indication: PLASMA CELL MYELOMA
     Route: 065
     Dates: end: 20210601
  2. POMALYST [Suspect]
     Active Substance: POMALIDOMIDE
     Indication: PLASMA CELL MYELOMA
     Dosage: 4 MILLIGRAM
     Route: 048
     Dates: start: 20210521, end: 20210604
  3. HYDROCORTISONE. [Concomitant]
     Active Substance: HYDROCORTISONE
     Indication: ACIDOSIS
     Route: 065
  4. BICARBONATE DRIP [Concomitant]
     Active Substance: SODIUM BICARBONATE
     Indication: ACIDOSIS
     Route: 065

REACTIONS (4)
  - Acute kidney injury [Fatal]
  - Pneumonia [Fatal]
  - Respiratory failure [Fatal]
  - Septic shock [Fatal]

NARRATIVE: CASE EVENT DATE: 2021
